FAERS Safety Report 6475434-4 (Version None)
Quarter: 2009Q4

REPORT INFORMATION
  Report Type: 
  Country: None (occurrence: None)
  Receive Date: 20091204
  Receipt Date: 20091130
  Transmission Date: 20100525
  Serious: Yes (Death)
  Sender: FDA-Public Use
  Company Number: US-CELGENEUS-163-21880-09100629

PATIENT
  Sex: Male

DRUGS (3)
  1. REVLIMID [Suspect]
     Indication: MULTIPLE MYELOMA
     Route: 048
     Dates: start: 20080901
  2. REVLIMID [Suspect]
     Route: 048
     Dates: start: 20070702
  3. REVLIMID [Suspect]
     Dosage: 15-10-5 MG
     Route: 048
     Dates: start: 20080101

REACTIONS (1)
  - MULTIPLE MYELOMA [None]
